FAERS Safety Report 7146386-9 (Version None)
Quarter: 2010Q4

REPORT INFORMATION
  Report Type: 
  Country: None (occurrence: None)
  Receive Date: 20101208
  Receipt Date: 20100328
  Transmission Date: 20110411
  Serious: No
  Sender: FDA-Public Use
  Company Number: US-BRISTOL-MYERS SQUIBB COMPANY-15028186

PATIENT
  Age: 60 Year
  Sex: Female
  Weight: 73 kg

DRUGS (3)
  1. PRAVASTATIN SODIUM [Suspect]
     Indication: BLOOD CHOLESTEROL INCREASED
     Route: 048
     Dates: start: 20100101
  2. PREMPRO [Concomitant]
  3. RESTASIS [Concomitant]
     Dosage: RESTASIS EYE DROPS

REACTIONS (8)
  - CHILLS [None]
  - DISORIENTATION [None]
  - DIZZINESS [None]
  - HEART RATE INCREASED [None]
  - NASOPHARYNGITIS [None]
  - THIRST [None]
  - TREMOR [None]
  - VISION BLURRED [None]
